APPROVED DRUG PRODUCT: LORATADINE
Active Ingredient: LORATADINE
Strength: 10MG
Dosage Form/Route: TABLET;ORAL
Application: A207569 | Product #001
Applicant: ANDA REPOSITORY LLC
Approved: Mar 12, 2019 | RLD: No | RS: No | Type: OTC